FAERS Safety Report 6760716-9 (Version None)
Quarter: 2010Q2

REPORT INFORMATION
  Report Type: 
  Country: None (occurrence: None)
  Receive Date: 20100607
  Receipt Date: 20100607
  Transmission Date: 20101027
  Serious: Yes (Other)
  Sender: FDA-Public Use
  Company Number: None

PATIENT
  Sex: Male
  Weight: 73.9363 kg

DRUGS (1)
  1. NASONEX [Suspect]
     Indication: MIDDLE EAR EFFUSION
     Dosage: TWO SPRAYS IN EACH NOSTRIL ONCE A DAY, NASAL
     Route: 045
     Dates: start: 20100524, end: 20100606

REACTIONS (5)
  - ANXIETY [None]
  - CHROMATURIA [None]
  - DEAFNESS [None]
  - HYPOACUSIS [None]
  - PRURITUS GENERALISED [None]
